FAERS Safety Report 5515112-9 (Version None)
Quarter: 2007Q4

REPORT INFORMATION
  Report Type: 
  Country: None (occurrence: None)
  Receive Date: 20071113
  Receipt Date: 20070109
  Transmission Date: 20080405
  Serious: No
  Sender: FDA-Public Use
  Company Number: A0634924A

PATIENT
  Age: 54 Year
  Sex: Male

DRUGS (6)
  1. COREG [Suspect]
     Dosage: 3.125MG TWICE PER DAY
     Route: 048
     Dates: start: 20070108
  2. AMBIEN [Concomitant]
  3. LISINOPRIL [Concomitant]
  4. ASPIRIN [Concomitant]
  5. SPIRONOLACTONE [Concomitant]
  6. FUROSEMIDE [Concomitant]

REACTIONS (1)
  - DYSPNOEA [None]
